FAERS Safety Report 7544214-0 (Version None)
Quarter: 2011Q2

REPORT INFORMATION
  Report Type: 
  Country: None (occurrence: None)
  Receive Date: 20110613
  Receipt Date: 20060913
  Transmission Date: 20111010
  Serious: Yes (Death, Hospitalization, Other)
  Sender: FDA-Public Use
  Company Number: PHHO2006CO13566

PATIENT
  Sex: Female

DRUGS (9)
  1. BISOPROLOL FUMARATE [Concomitant]
     Dosage: UNKNOWN
  2. BERODUAL [Concomitant]
     Dosage: UNKNOWN
  3. RABEPRAZOLE SODIUM [Concomitant]
     Dosage: UNKNOWN
  4. ALDACTONE [Concomitant]
     Dosage: UNKNOWN
  5. DIOVAN HCT [Suspect]
     Indication: HYPERTENSION
     Dosage: 160/12.5MG DAILY
     Route: 048
     Dates: start: 20030101
  6. ISCOVER [Concomitant]
     Dosage: UNKNOWN
  7. ZOCOR [Concomitant]
     Dosage: UNKNOWN
  8. LANITOP [Concomitant]
     Dosage: UNKNOWN
  9. FLUIMUCIL [Concomitant]
     Dosage: UNKNOWN

REACTIONS (8)
  - DISEASE PROGRESSION [None]
  - BRONCHOPNEUMONIA [None]
  - DYSPNOEA PAROXYSMAL NOCTURNAL [None]
  - PANCREATITIS [None]
  - WEIGHT INCREASED [None]
  - CARDIAC DISORDER [None]
  - RESPIRATORY TRACT INFECTION [None]
  - DYSPHONIA [None]
